FAERS Safety Report 5956325-1 (Version None)
Quarter: 2008Q4

REPORT INFORMATION
  Report Type: 
  Country: None (occurrence: None)
  Receive Date: 20081118
  Receipt Date: 20081110
  Transmission Date: 20090506
  Serious: Yes (Other)
  Sender: FDA-Public Use
  Company Number: PHHY2008BR27962

PATIENT
  Age: 84 Year
  Sex: Female
  Weight: 65 kg

DRUGS (3)
  1. EXELON [Suspect]
     Dosage: 9 MG/5 CM2
     Route: 062
  2. TRILEPTAL [Concomitant]
     Indication: NERVOUS SYSTEM DISORDER
     Dosage: HALF TABLET DAILY
     Route: 048
     Dates: end: 20081110
  3. TRILEPTAL [Concomitant]
     Dosage: HALF TABLET IN THE MORNING AND ONE TABLET AT NIGHT

REACTIONS (9)
  - DIZZINESS [None]
  - ERUCTATION [None]
  - ERYTHEMA [None]
  - FATIGUE [None]
  - FLATULENCE [None]
  - HYPERSENSITIVITY [None]
  - NERVOUS SYSTEM DISORDER [None]
  - PRURITUS [None]
  - SKIN IRRITATION [None]
